FAERS Safety Report 10146455 (Version 4)
Quarter: 2014Q2

REPORT INFORMATION
  Report Type: Report from Study
  Country: US (occurrence: US)
  Receive Date: 20140501
  Receipt Date: 20140520
  Transmission Date: 20141212
  Serious: Yes (Life-Threatening, Hospitalization, Disabling)
  Sender: FDA-Public Use
  Company Number: US-ACTELION-A-NJ2014-98331

PATIENT
  Age: 72 Year
  Sex: Male
  Weight: 112.47 kg

DRUGS (13)
  1. VENTAVIS [Suspect]
     Indication: PULMONARY ARTERIAL HYPERTENSION
     Dosage: 6XDAILY
     Route: 055
     Dates: start: 201106
  2. PLAVIX [Suspect]
     Indication: PRODUCT USED FOR UNKNOWN INDICATION
  3. LETAIRIS [Concomitant]
     Dosage: 5 MG, QD
     Route: 048
  4. CARVEDILOL [Concomitant]
     Dosage: 6.25 MG, UNK
  5. KLOR-CON [Concomitant]
     Dosage: 20 MEQ, QD
     Route: 048
  6. PROZAC [Concomitant]
     Dosage: 40 MG, QD
     Route: 048
  7. FUROSEMIDE [Concomitant]
     Dosage: 40 MG, QD
     Route: 048
  8. LISINOPRIL [Concomitant]
     Dosage: 20 MG, QD
     Route: 048
  9. ONGLYZA [Concomitant]
     Dosage: 2.5 MG, QD
     Route: 048
  10. OMEPRAZOLE [Concomitant]
     Dosage: 20 MG, QD
     Route: 048
  11. SPIRONOLACTONE [Concomitant]
     Dosage: 25 MG, QD
     Route: 048
  12. COLCRYS [Concomitant]
     Dosage: 0.6 MG, QD
     Route: 048
  13. CALCIUM + VITAMIN D [Concomitant]
     Dosage: UNK, QD
     Route: 048

REACTIONS (10)
  - Haemorrhage [Recovering/Resolving]
  - Coronary artery disease [Recovering/Resolving]
  - Coronary artery occlusion [Recovering/Resolving]
  - Coronary arterial stent insertion [Unknown]
  - Chronic respiratory failure [Recovering/Resolving]
  - Dyspnoea [Recovering/Resolving]
  - Dizziness [Recovering/Resolving]
  - Dyspnoea exertional [Recovering/Resolving]
  - Gait disturbance [Recovering/Resolving]
  - Oxygen saturation decreased [Unknown]
